FAERS Safety Report 10243229 (Version 5)
Quarter: 2014Q4

REPORT INFORMATION
  Report Type: Spontaneous
  Country: US (occurrence: None)
  Receive Date: 20140616
  Receipt Date: 20141015
  Transmission Date: 20150528
  Serious: Yes (Hospitalization, Other)
  Sender: FDA-Public Use
  Company Number: UNT-2014-000354

PATIENT
  Age: 43 Year
  Sex: Female
  Weight: 64.4 kg

DRUGS (4)
  1. REMODULIN [Suspect]
     Active Substance: TREPROSTINIL
     Indication: PULMONARY ARTERIAL HYPERTENSION
     Dosage: 0.101 ?G/KG/MIN, CONTINUING, IV DRIP
     Route: 041
     Dates: start: 20100514
  2. OPSUMIT (MACITENTAN) [Concomitant]
  3. REMODULIN [Suspect]
     Active Substance: TREPROSTINIL
     Indication: COR PULMONALE CHRONIC
     Dosage: 0.101 ?G/KG/MIN, CONTINUING, IV DRIP
     Route: 041
     Dates: start: 20100514
  4. COUMADIN /00014802/ (WARFARIN SODIUM) [Concomitant]

REACTIONS (14)
  - Abdominal discomfort [None]
  - White blood cell disorder [None]
  - Upper respiratory tract infection [None]
  - Gastritis [None]
  - Vomiting [None]
  - Hyperchloraemia [None]
  - Blood electrolytes decreased [None]
  - Infection [None]
  - Weight decreased [None]
  - Diarrhoea [None]
  - Bacterial infection [None]
  - Metabolic acidosis [None]
  - Dehydration [None]
  - Nausea [None]

NARRATIVE: CASE EVENT DATE: 201405
